FAERS Safety Report 16893880 (Version 1)
Quarter: 2019Q4

REPORT INFORMATION
  Report Type: Report from Study
  Country: None (occurrence: CR)
  Receive Date: 20191008
  Receipt Date: 20191008
  Transmission Date: 20200122
  Serious: Yes (Death)
  Sender: FDA-Public Use
  Company Number: CR-ABBVIE-19K-039-2954243-00

PATIENT
  Age: 59 Year
  Sex: Female

DRUGS (1)
  1. HUMIRA [Suspect]
     Active Substance: ADALIMUMAB
     Indication: ANKYLOSING SPONDYLITIS
     Route: 058
     Dates: start: 20110101, end: 20190907

REACTIONS (4)
  - Abdominal discomfort [Fatal]
  - Immunosuppression [Fatal]
  - Pulmonary function test abnormal [Fatal]
  - Ankylosing spondylitis [Fatal]

NARRATIVE: CASE EVENT DATE: 20190907
